FAERS Safety Report 6171064-2 (Version None)
Quarter: 2009Q2

REPORT INFORMATION
  Report Type: 
  Country: None (occurrence: None)
  Receive Date: 20090428
  Receipt Date: 20090428
  Transmission Date: 20091009
  Serious: No
  Sender: FDA-Public Use
  Company Number: None

PATIENT
  Sex: Female

DRUGS (7)
  1. BUPROPION HCL [Suspect]
     Indication: DEPRESSION
     Dosage: 300MG QAM PO
     Route: 048
     Dates: start: 20080608, end: 20090427
  2. BUPROPION HCL [Suspect]
  3. SYNTHROID [Concomitant]
  4. BUPROPION HCL [Concomitant]
  5. ARTHROTEC [Concomitant]
  6. TOPAMAX [Concomitant]
  7. LYRICA [Concomitant]

REACTIONS (5)
  - DEPRESSED LEVEL OF CONSCIOUSNESS [None]
  - DIZZINESS [None]
  - GAIT DISTURBANCE [None]
  - HYPOAESTHESIA ORAL [None]
  - VISION BLURRED [None]
